FAERS Safety Report 8819359 (Version 1)
Quarter: 2012Q4

REPORT INFORMATION
  Report Type: Report from Study
  Country: JP (occurrence: JP)
  Receive Date: 20121001
  Receipt Date: 20121001
  Transmission Date: 20130627
  Serious: Yes (Other)
  Sender: FDA-Public Use
  Company Number: JP-009507513-2012SP028715

PATIENT
  Age: 51 Year
  Sex: Male
  Weight: 64 kg

DRUGS (21)
  1. PEGINTERFERON ALFA-2B [Suspect]
     Indication: HEPATITIS C
     Dosage: 1.5 ?g/kg, QW
     Route: 058
     Dates: start: 20120324, end: 20120903
  2. REBETOL [Suspect]
     Indication: HEPATITIS C
     Dosage: 800 mg, QD
     Route: 048
     Dates: start: 20120324, end: 20120429
  3. REBETOL [Suspect]
     Dosage: 400 mg, QD
     Route: 048
     Dates: start: 20120430, end: 20120527
  4. REBETOL [Suspect]
     Dosage: 200 mg, qd
     Route: 048
     Dates: start: 20120528, end: 20120611
  5. REBETOL [Suspect]
     Dosage: 200 mg, qd
     Route: 048
     Dates: start: 20120709, end: 20120716
  6. REBETOL [Suspect]
     Dosage: 400 mg, qd
     Route: 048
     Dates: start: 20120717, end: 20120729
  7. REBETOL [Suspect]
     Dosage: 600 mg, qd
     Route: 048
     Dates: start: 20120730, end: 20120812
  8. REBETOL [Suspect]
     Dosage: 800 mg, qd
     Route: 048
     Dates: start: 20120813, end: 20120903
  9. TELAPREVIR [Suspect]
     Indication: HEPATITIS C
     Dosage: 1500, mg, qd
     Route: 048
     Dates: start: 20120324, end: 20120616
  10. LASIX (FUROSEMIDE) [Concomitant]
     Indication: OEDEMA DUE TO HEPATIC DISEASE
     Dosage: FORMULATION: POR
     Route: 048
  11. LASIX (FUROSEMIDE) [Concomitant]
     Indication: HYPERTENSION
  12. MACACY A [Concomitant]
     Indication: OEDEMA DUE TO HEPATIC DISEASE
     Dosage: FORMULATION: POR
     Route: 048
  13. MACACY A [Concomitant]
     Indication: HYPERTENSION
  14. LIVALO [Concomitant]
     Indication: HYPERLIPIDAEMIA
     Dosage: FORMULATION: POR
     Route: 048
  15. EPADEL S [Concomitant]
     Indication: HYPERLIPIDAEMIA
     Dosage: 1800, mg, qd
     Route: 048
  16. FEROTYM [Concomitant]
     Indication: IRON DEFICIENCY ANAEMIA
     Dosage: FORMULATION: POR
     Route: 048
  17. ALLELOCK [Concomitant]
     Indication: RHINITIS ALLERGIC
     Dosage: FORMULATION: POR
     Route: 048
  18. ALLELOCK [Concomitant]
     Indication: PROPHYLAXIS
  19. ZYLORIC [Concomitant]
     Indication: HYPERURICAEMIA
     Dosage: FORMULATION: POR
     Route: 048
  20. NEXIUM [Concomitant]
     Indication: GASTROOESOPHAGEAL REFLUX DISEASE
     Dosage: 20 mg, qd
     Route: 048
  21. ATARAX P [Concomitant]
     Indication: DERMATITIS ALLERGIC
     Dosage: 25 mg, qd
     Route: 048

REACTIONS (4)
  - Anaemia [Not Recovered/Not Resolved]
  - Anaemia [Not Recovered/Not Resolved]
  - Platelet count decreased [Recovered/Resolved]
  - Anaemia [Not Recovered/Not Resolved]
